FAERS Safety Report 23638185 (Version 1)
Quarter: 2024Q1

REPORT INFORMATION
  Report Type: Spontaneous
  Country: CZ (occurrence: CZ)
  Receive Date: 20240315
  Receipt Date: 20240315
  Transmission Date: 20240410
  Serious: Yes (Hospitalization, Other)
  Sender: FDA-Public Use
  Company Number: CZ-GILEAD-2024-0665501

PATIENT
  Age: 73 Year
  Sex: Male

DRUGS (1)
  1. YESCARTA [Suspect]
     Active Substance: AXICABTAGENE CILOLEUCEL
     Indication: Product used for unknown indication
     Route: 065

REACTIONS (1)
  - Anaphylactic shock [Not Recovered/Not Resolved]

NARRATIVE: CASE EVENT DATE: 20240312
